FAERS Safety Report 7537788-7 (Version None)
Quarter: 2011Q2

REPORT INFORMATION
  Report Type: 
  Country: None (occurrence: None)
  Receive Date: 20110609
  Receipt Date: 20110531
  Transmission Date: 20111010
  Serious: Yes (Hospitalization, Other)
  Sender: FDA-Public Use
  Company Number: JP-CEPHALON-2011000924

PATIENT
  Age: 75 Year
  Sex: Female
  Weight: 52 kg

DRUGS (9)
  1. GRANISETRON HCL [Concomitant]
  2. PREDNISOLONE [Concomitant]
     Dates: start: 20110128, end: 20110212
  3. DIAZEPAM [Concomitant]
     Dates: start: 20110128, end: 20110131
  4. AMLODIPINE BESYLATE [Concomitant]
     Dates: end: 20110219
  5. ACYCLOVIR [Concomitant]
  6. LANSOPRAZOLE [Concomitant]
     Dates: end: 20110219
  7. SULFAMETHOXAZOLE AND TRIMETHOPRIM [Concomitant]
     Dates: end: 20110219
  8. DOMPERIDONE [Concomitant]
     Dates: start: 20110128, end: 20110210
  9. BENDAMUSTINE HCL [Suspect]
     Indication: B-CELL LYMPHOMA
     Route: 041
     Dates: start: 20110128, end: 20110129

REACTIONS (5)
  - NEUTROPHIL COUNT DECREASED [None]
  - LYMPHOPENIA [None]
  - BLOOD LACTATE DEHYDROGENASE INCREASED [None]
  - C-REACTIVE PROTEIN INCREASED [None]
  - WHITE BLOOD CELL COUNT DECREASED [None]
